FAERS Safety Report 7941418-X (Version None)
Quarter: 2011Q4

REPORT INFORMATION
  Report Type: 
  Country: None (occurrence: None)
  Receive Date: 20111128
  Receipt Date: 20110527
  Transmission Date: 20120403
  Serious: No
  Sender: FDA-Public Use
  Company Number: US-MYLANLABS-2011S1011193

PATIENT
  Age: 67 Year
  Sex: Female
  Weight: 45.36 kg

DRUGS (2)
  1. MORPHINE [Concomitant]
  2. DURACLON [Suspect]
     Indication: PAIN
     Route: 037
     Dates: start: 19960101, end: 20110501

REACTIONS (1)
  - INFECTION [None]
